FAERS Safety Report 17212276 (Version 2)
Quarter: 2021Q2

REPORT INFORMATION
  Report Type: Spontaneous
  Country: JP (occurrence: JP)
  Receive Date: 20191230
  Receipt Date: 20210406
  Transmission Date: 20210716
  Serious: Yes (Other)
  Sender: FDA-Public Use
  Company Number: JP-BRISTOL-MYERS SQUIBB COMPANY-BMS-2018-038307

PATIENT
  Age: 71 Year
  Sex: Male

DRUGS (6)
  1. LOXOPROFEN SODIUM HYDRATE [Suspect]
     Active Substance: LOXOPROFEN SODIUM DIHYDRATE
     Dosage: UNK
     Route: 048
     Dates: start: 2018
  2. LOXOPROFEN SODIUM HYDRATE [Suspect]
     Active Substance: LOXOPROFEN SODIUM DIHYDRATE
     Indication: PAIN
     Dosage: 60 MILLIGRAM, PRN
     Route: 048
     Dates: start: 201605, end: 201807
  3. PREDONINE [Concomitant]
     Active Substance: PREDNISOLONE
     Indication: LYMPHOEDEMA
     Dosage: UNK
     Route: 048
  4. CETIRIZINE HYDROCHLORIDE. [Concomitant]
     Active Substance: CETIRIZINE HYDROCHLORIDE
     Indication: PRURITUS
     Dosage: UNK
     Route: 048
  5. OPDIVO [Suspect]
     Active Substance: NIVOLUMAB
     Indication: NON-SMALL CELL LUNG CANCER RECURRENT
     Dosage: 3 MILLIGRAM/KILOGRAM, Q2WK
     Route: 041
     Dates: start: 20171024
  6. CHLORPHENIRAMINE [CHLORPHENAMINE MALEATE] [Concomitant]
     Active Substance: CHLORPHENIRAMINE MALEATE
     Indication: PRURITUS
     Dosage: UNK
     Route: 048

REACTIONS (4)
  - Pruritus [Unknown]
  - Dermatomyositis [Unknown]
  - Rash maculo-papular [Unknown]
  - Leukoderma [Not Recovered/Not Resolved]

NARRATIVE: CASE EVENT DATE: 20180413
